FAERS Safety Report 18024188 (Version 4)
Quarter: 2020Q3

REPORT INFORMATION
  Report Type: Spontaneous
  Country: US (occurrence: US)
  Receive Date: 20200714
  Receipt Date: 20200924
  Transmission Date: 20201103
  Serious: Yes (Death, Hospitalization)
  Sender: FDA-Public Use
  Company Number: US-SEATTLE GENETICS-2020SGN02182

PATIENT
  Sex: Female

DRUGS (1)
  1. TUKYSA [Suspect]
     Active Substance: TUCATINIB
     Indication: BREAST CANCER FEMALE
     Dosage: UNK UNK, BID

REACTIONS (13)
  - Vitamin B12 decreased [Unknown]
  - Fatigue [Unknown]
  - Asthenia [Unknown]
  - Fall [Unknown]
  - Death [Fatal]
  - Myalgia [Unknown]
  - Back pain [Unknown]
  - Urinary tract infection [Unknown]
  - Paraesthesia [Unknown]
  - Diarrhoea [Unknown]
  - Anxiety [Unknown]
  - Insomnia [Unknown]
  - Liver function test increased [Unknown]
